FAERS Safety Report 5379296-8 (Version None)
Quarter: 2007Q3

REPORT INFORMATION
  Report Type: 
  Country: None (occurrence: None)
  Receive Date: 20070705
  Receipt Date: 20070626
  Transmission Date: 20080115
  Serious: Yes (Other)
  Sender: FDA-Public Use
  Company Number: FR-SHR-FR-2007-023907

PATIENT
  Age: 65 Year
  Sex: Female

DRUGS (1)
  1. FLUDARA [Suspect]
     Route: 042
     Dates: start: 20060101

REACTIONS (3)
  - EXTRAPYRAMIDAL DISORDER [None]
  - HAEMOLYTIC ANAEMIA [None]
  - TREMOR [None]
